FAERS Safety Report 22635383 (Version 1)
Quarter: 2023Q2

REPORT INFORMATION
  Report Type: Spontaneous
  Country: CA (occurrence: CA)
  Receive Date: 20230623
  Receipt Date: 20230623
  Transmission Date: 20230722
  Serious: Yes (Other)
  Sender: FDA-Public Use
  Company Number: CA-BAYER-2023A086488

PATIENT
  Sex: Female

DRUGS (6)
  1. YASMIN [Suspect]
     Active Substance: DROSPIRENONE\ETHINYL ESTRADIOL
     Dosage: UNK
     Route: 048
     Dates: start: 20061218, end: 20070107
  2. DALTEPARIN [Concomitant]
     Active Substance: DALTEPARIN
  3. COUMADIN [Concomitant]
     Active Substance: WARFARIN SODIUM
  4. NILSTAT [CEFOTAXIME SODIUM] [Concomitant]
  5. FLOVENT [Concomitant]
     Active Substance: FLUTICASONE PROPIONATE
  6. ALBUTEROL [Concomitant]
     Active Substance: ALBUTEROL

REACTIONS (12)
  - Pulmonary embolism [None]
  - Deep vein thrombosis [None]
  - Arteriosclerosis coronary artery [None]
  - Uterine haemorrhage [None]
  - Thrombophlebitis [None]
  - Pain in extremity [None]
  - Palpitations [None]
  - Dizziness [None]
  - Anaemia [None]
  - Respiratory disorder [None]
  - Menometrorrhagia [None]
  - Menopause [None]
